FAERS Safety Report 9901242 (Version 3)
Quarter: 2014Q2

REPORT INFORMATION
  Report Type: Spontaneous
  Country: US (occurrence: US)
  Receive Date: 20140217
  Receipt Date: 20140605
  Transmission Date: 20141212
  Serious: Yes (Other)
  Sender: FDA-Public Use
  Company Number: US-BAYER-2014-024008

PATIENT
  Age: 34 Year
  Sex: Female

DRUGS (2)
  1. MIRENA [Suspect]
     Dosage: DAILY DOSE 20 ?G
     Route: 015
     Dates: start: 20110616, end: 20121009
  2. PRILOSEC [Concomitant]
     Dosage: 20 MG, DAILY BEFORE BREAKFAST
     Route: 048

REACTIONS (6)
  - Device failure [None]
  - Embedded device [None]
  - Device breakage [None]
  - Injury [None]
  - Emotional distress [None]
  - Pain [None]
